FAERS Safety Report 10446741 (Version 1)
Quarter: 2014Q3

REPORT INFORMATION
  Report Type: Spontaneous
  Country: US (occurrence: None)
  Receive Date: 20140909
  Receipt Date: 20140909
  Transmission Date: 20150326
  Serious: Yes (Hospitalization)
  Sender: FDA-Public Use
  Company Number: 2014US003655

PATIENT
  Age: 66 Year
  Sex: Male

DRUGS (7)
  1. ICLUSIG [Suspect]
     Active Substance: PONATINIB
     Indication: NEOPLASM MALIGNANT
     Route: 048
  2. LISINOPRIL. [Concomitant]
     Active Substance: LISINOPRIL
  3. CLOPIDOGREL BISULFATE. [Concomitant]
     Active Substance: CLOPIDOGREL BISULFATE
  4. LATANOPROST. [Concomitant]
     Active Substance: LATANOPROST
  5. SERTRALINE [Concomitant]
     Active Substance: SERTRALINE HYDROCHLORIDE
  6. CLONIDINE (CLONIDINE HYDROCHLORIDE) [Concomitant]
  7. AMLODIPINE (AMLODIPINE BESILATE) [Concomitant]

REACTIONS (5)
  - Off label use [None]
  - Hypoaesthesia [None]
  - Muscle tightness [None]
  - Peripheral arterial occlusive disease [None]
  - Muscle spasms [None]
